FAERS Safety Report 6196334-3 (Version None)
Quarter: 2009Q2

REPORT INFORMATION
  Report Type: 
  Country: None (occurrence: None)
  Receive Date: 20090515
  Receipt Date: 20081104
  Transmission Date: 20091009
  Serious: No
  Sender: FDA-Public Use
  Company Number: AE 2009-037

PATIENT
  Sex: Male

DRUGS (2)
  1. FAZACLO ODT [Suspect]
     Dates: start: 20070201, end: 20070401
  2. FAZACLO ODT [Suspect]

REACTIONS (1)
  - DRUG INEFFECTIVE [None]
